FAERS Safety Report 16201026 (Version 4)
Quarter: 2024Q2

REPORT INFORMATION
  Report Type: Spontaneous
  Country: PL (occurrence: PL)
  Receive Date: 20190416
  Receipt Date: 20240409
  Transmission Date: 20240715
  Serious: Yes (Other)
  Sender: FDA-Public Use
  Company Number: PL-MLMSERVICE-20190409-1702088-1

PATIENT
  Age: 55 Year
  Sex: Female

DRUGS (3)
  1. DOCETAXEL [Suspect]
     Active Substance: DOCETAXEL\DOCETAXEL ANHYDROUS
     Indication: Invasive breast carcinoma
     Dosage: 6 AT REGIMEN 75 MG/M2, EVERY 3 WEEKS
     Route: 065
  2. DOXORUBICIN [Suspect]
     Active Substance: DOXORUBICIN
     Indication: Invasive breast carcinoma
     Dosage: 6 AT REGIMEN 50 MG/M2, EVERY 3 WEEKS
     Route: 065
  3. LETROZOLE [Suspect]
     Active Substance: LETROZOLE
     Indication: Invasive breast carcinoma
     Dosage: UNK UNK, UNK
     Route: 065

REACTIONS (4)
  - Deep vein thrombosis [Unknown]
  - Post thrombotic syndrome [Unknown]
  - Metastases to skin [Unknown]
  - Lymphoedema [Recovering/Resolving]
